FAERS Safety Report 8516234-0 (Version None)
Quarter: 2012Q3

REPORT INFORMATION
  Report Type: 
  Country: None (occurrence: None)
  Receive Date: 20120717
  Receipt Date: 20120716
  Transmission Date: 20120928
  Serious: Yes (Other)
  Sender: FDA-Public Use
  Company Number: US-BAYER-2012-070304

PATIENT
  Age: 48 Year
  Sex: Female

DRUGS (3)
  1. DEXAMETHASONE [Concomitant]
     Indication: JOINT INJURY
  2. CORTISONE ACETATE [Concomitant]
     Indication: JOINT INJURY
  3. GADAVIST [Suspect]
     Indication: ARTHROGRAM
     Dosage: UNK
     Dates: start: 20120531, end: 20120531

REACTIONS (33)
  - PAINFUL RESPIRATION [None]
  - URETERITIS [None]
  - TREMOR [None]
  - MYALGIA [None]
  - MALAISE [None]
  - BLINDNESS TRANSIENT [None]
  - ERYTHEMA [None]
  - CHEMICAL INJURY [None]
  - APTYALISM [None]
  - BLOOD GLUCOSE INCREASED [None]
  - PARALYSIS [None]
  - PAIN IN EXTREMITY [None]
  - SKIN BURNING SENSATION [None]
  - ANXIETY [None]
  - NAUSEA [None]
  - CHEST DISCOMFORT [None]
  - LOSS OF CONSCIOUSNESS [None]
  - NEUROPATHY PERIPHERAL [None]
  - SKIN DISORDER [None]
  - DYSGEUSIA [None]
  - VISION BLURRED [None]
  - NEURALGIA [None]
  - PAIN [None]
  - MUSCULOSKELETAL CHEST PAIN [None]
  - HYPOAESTHESIA [None]
  - HEADACHE [None]
  - RENAL PAIN [None]
  - BURNING SENSATION [None]
  - DYSPNOEA [None]
  - DRY MOUTH [None]
  - BONE PAIN [None]
  - PALPITATIONS [None]
  - CHEST PAIN [None]
